FAERS Safety Report 4775444-9 (Version None)
Quarter: 2005Q3

REPORT INFORMATION
  Report Type: 
  Country: None (occurrence: None)
  Receive Date: 20050922
  Receipt Date: 20050912
  Transmission Date: 20060218
  Serious: Yes (Hospitalization)
  Sender: FDA-Public Use
  Company Number: GB-BRISTOL-MYERS SQUIBB COMPANY-13107941

PATIENT
  Age: 76 Year
  Sex: Male

DRUGS (5)
  1. WARFARIN SODIUM [Suspect]
     Indication: HEART VALVE REPLACEMENT
     Route: 048
     Dates: start: 19970101
  2. ASPIRIN [Suspect]
     Indication: PROPHYLAXIS
     Route: 048
     Dates: start: 19990101
  3. ATORVASTATIN [Concomitant]
     Indication: CARDIAC DISORDER
     Dates: start: 20020101
  4. LISINOPRIL [Concomitant]
     Indication: CARDIAC DISORDER
     Dates: start: 20010101
  5. PANTOPRAZOLE [Concomitant]
     Indication: ABDOMINAL PAIN
     Dates: start: 20050812

REACTIONS (8)
  - ABDOMINAL PAIN [None]
  - ASTHENIA [None]
  - DUODENAL ULCER [None]
  - DYSPNOEA [None]
  - FEELING ABNORMAL [None]
  - HAEMOGLOBIN DECREASED [None]
  - INTERNATIONAL NORMALISED RATIO INCREASED [None]
  - MELAENA [None]
